FAERS Safety Report 7818016-1 (Version None)
Quarter: 2011Q4

REPORT INFORMATION
  Report Type: 
  Country: None (occurrence: None)
  Receive Date: 20111017
  Receipt Date: 20111011
  Transmission Date: 20120403
  Serious: No
  Sender: FDA-Public Use
  Company Number: US-PFIZER INC-2011179680

PATIENT
  Sex: Male
  Weight: 93.424 kg

DRUGS (1)
  1. VIAGRA [Suspect]
     Indication: ERECTILE DYSFUNCTION
     Dosage: 100 MG, AS NEEDED
     Route: 048

REACTIONS (3)
  - DRUG INEFFECTIVE [None]
  - GENITAL HYPOAESTHESIA [None]
  - ANORGASMIA [None]
